FAERS Safety Report 5460417-3 (Version None)
Quarter: 2007Q3

REPORT INFORMATION
  Report Type: 
  Country: None (occurrence: None)
  Receive Date: 20070919
  Receipt Date: 20070628
  Transmission Date: 20080115
  Serious: No
  Sender: FDA-Public Use
  Company Number: US-ASTRAZENECA-2007UW15512

PATIENT
  Age: 19 Year
  Sex: Female

DRUGS (6)
  1. SEROQUEL [Suspect]
     Route: 048
  2. SEROQUEL [Suspect]
     Route: 048
     Dates: start: 20070529
  3. SEROQUEL [Suspect]
     Route: 048
  4. TRAZODONE HCL [Concomitant]
  5. MULTI-VITAMIN [Concomitant]
  6. LORAZEPAM [Concomitant]

REACTIONS (1)
  - ALOPECIA [None]
